FAERS Safety Report 5157359-X (Version None)
Quarter: 2006Q4

REPORT INFORMATION
  Report Type: 
  Country: None (occurrence: None)
  Receive Date: 20061127
  Receipt Date: 20061113
  Transmission Date: 20070319
  Serious: Yes (Hospitalization)
  Sender: FDA-Public Use
  Company Number: FR-AVENTIS-200613985FR

PATIENT
  Age: 70 Year
  Sex: Female

DRUGS (3)
  1. RILUTEK [Suspect]
     Indication: AMYOTROPHIC LATERAL SCLEROSIS
     Route: 048
     Dates: start: 20060711, end: 20060718
  2. RILUTEK [Suspect]
     Route: 048
     Dates: start: 20060719, end: 20060804
  3. TOCO [Suspect]
     Indication: AMYOTROPHIC LATERAL SCLEROSIS

REACTIONS (5)
  - ALANINE AMINOTRANSFERASE INCREASED [None]
  - ATRIAL FIBRILLATION [None]
  - BLOOD ALKALINE PHOSPHATASE INCREASED [None]
  - HEPATIC TRAUMA [None]
  - PYREXIA [None]
